FAERS Safety Report 4372322-4 (Version None)
Quarter: 2004Q2

REPORT INFORMATION
  Report Type: 
  Country: None (occurrence: None)
  Receive Date: 20040602
  Receipt Date: 20040521
  Transmission Date: 20050107
  Serious: Yes (Hospitalization, Other)
  Sender: FDA-Public Use
  Company Number: USA-2004-0015317

PATIENT
  Sex: Female

DRUGS (3)
  1. CEFDITOREN PIVOXIL (SIMILAR TO NDA 21-222) (CEFDITOREN PIVOXIL) OTHER [Suspect]
     Indication: OTITIS MEDIA
     Dosage: 120 MG, DAILY, ORAL
     Route: 048
     Dates: start: 20040517, end: 20040520
  2. CEFDITOREN PIVOXIL (SIMILAR TO NDA 21-222) (CEFDITOREN PIVOXIL) OTHER [Suspect]
     Indication: TONSILLITIS
     Dosage: 120 MG, DAILY, ORAL
     Route: 048
     Dates: start: 20040517, end: 20040520
  3. ENTERONON R (BIFIDOBACTERIUM BIFIDUM, LACTOBACILLUS ACIDOPHILUS, LACTO [Concomitant]

REACTIONS (1)
  - STEVENS-JOHNSON SYNDROME [None]
